FAERS Safety Report 4699378-3 (Version None)
Quarter: 2005Q2

REPORT INFORMATION
  Report Type: 
  Country: None (occurrence: None)
  Receive Date: 20050622
  Receipt Date: 20050617
  Transmission Date: 20051028
  Serious: Yes (Death, Life-Threatening, Disabling)
  Sender: FDA-Public Use
  Company Number: 2002-302-6-0023

PATIENT
  Age: 71 Year
  Sex: Female

DRUGS (10)
  1. ZONEGRAN [Suspect]
     Indication: PARKINSON'S DISEASE
     Dosage: 25 MG 1 IN 1 D ORAL
     Route: 048
     Dates: start: 20040608, end: 20040705
  2. SYMMETREL [Concomitant]
  3. PERMAX [Concomitant]
  4. BI-SIFROL                 (PRAMIPEXOLE HYDROCHLORIDE HYDRATE)(PRAMIPEX [Concomitant]
  5. SELEGILINE HYDROCHLORIDE [Concomitant]
  6. DOPS          (DROXIDOPA) [Concomitant]
  7. GASMOTIN         (MOSAPRIDE CITRATE) [Concomitant]
  8. FLORINEF [Concomitant]
  9. PURSENNID             (SENNA LEAF) [Concomitant]
  10. MADOPAR         (MADOPAR) [Concomitant]

REACTIONS (15)
  - ALANINE AMINOTRANSFERASE INCREASED [None]
  - ASPARTATE AMINOTRANSFERASE INCREASED [None]
  - BLOOD ALBUMIN DECREASED [None]
  - BLOOD GLUCOSE INCREASED [None]
  - BLOOD LACTATE DEHYDROGENASE INCREASED [None]
  - BRONCHITIS ACUTE [None]
  - CALCULUS URETERIC [None]
  - CARDIO-RESPIRATORY ARREST [None]
  - CONSTIPATION [None]
  - DYSPHAGIA [None]
  - HEART RATE INCREASED [None]
  - HYPERKALAEMIA [None]
  - HYPOTENSION [None]
  - NERVOUS SYSTEM DISORDER [None]
  - UPPER RESPIRATORY TRACT INFLAMMATION [None]
